FAERS Safety Report 6628294-2 (Version None)
Quarter: 2010Q1

REPORT INFORMATION
  Report Type: 
  Country: None (occurrence: None)
  Receive Date: 20100311
  Receipt Date: 20100302
  Transmission Date: 20100710
  Serious: Yes (Death)
  Sender: FDA-Public Use
  Company Number: JP-ELI_LILLY_AND_COMPANY-JP200912004456

PATIENT
  Sex: Male
  Weight: 61.3 kg

DRUGS (12)
  1. DULOXETINE HYDROCHLORIDE [Suspect]
     Indication: DIABETIC NEUROPATHY
     Dosage: 20 MG, DAILY (1/D)
     Route: 048
     Dates: start: 20090206, end: 20090212
  2. DULOXETINE HYDROCHLORIDE [Suspect]
     Dosage: 40 MG, DAILY (1/D)
     Route: 048
     Dates: start: 20090213
  3. CATLEP [Concomitant]
     Indication: MUSCULOSKELETAL STIFFNESS
     Route: 062
     Dates: start: 20090205, end: 20091210
  4. NOVORAPID [Concomitant]
     Indication: TYPE 1 DIABETES MELLITUS
     Dosage: 22 IU, DAILY (1/D)
     Route: 058
     Dates: start: 20081023, end: 20091210
  5. LEVEMIR [Concomitant]
     Indication: TYPE 1 DIABETES MELLITUS
     Dosage: 16 IU, DAILY (1/D)
     Route: 058
     Dates: end: 20091210
  6. AMLODIPINE [Concomitant]
     Indication: HYPERTENSION
     Dosage: 5 MG, DAILY (1/D)
     Route: 048
     Dates: end: 20091210
  7. DIOVAN [Concomitant]
     Indication: HYPERTENSION
     Dosage: 160 MG, DAILY (1/D)
     Route: 048
     Dates: end: 20091210
  8. SPIRIVA [Concomitant]
     Indication: CHRONIC OBSTRUCTIVE PULMONARY DISEASE
     Dosage: 18 UG, DAILY (1/D)
     Route: 055
     Dates: end: 20091210
  9. MEPTIN AIR [Concomitant]
     Indication: ASTHMA
     Dosage: 10 UG, AS NEEDED
     Route: 055
     Dates: end: 20091210
  10. EBASTINE [Concomitant]
     Indication: RHINITIS ALLERGIC
     Dosage: 10 MG, AS NEEDED
     Route: 048
     Dates: start: 20081023, end: 20091210
  11. HARNAL [Concomitant]
     Indication: BENIGN PROSTATIC HYPERPLASIA
     Dosage: 0.2 MG, DAILY (1/D)
     Route: 048
     Dates: start: 20090306, end: 20091210
  12. POVIDONE IODINE [Interacting]
     Indication: INFECTION PROPHYLAXIS
     Dosage: UNK, UNK
     Dates: start: 20091210, end: 20091210

REACTIONS (1)
  - MYOCARDIAL ISCHAEMIA [None]
